FAERS Safety Report 6308364-9 (Version None)
Quarter: 2009Q3

REPORT INFORMATION
  Report Type: 
  Country: None (occurrence: None)
  Receive Date: 20090813
  Receipt Date: 20090811
  Transmission Date: 20100115
  Serious: Yes (Hospitalization)
  Sender: FDA-Public Use
  Company Number: US-B.I. PHARMACEUTICALS,INC./RIDGEFIELD-2009-BP-09498BP

PATIENT
  Sex: Female

DRUGS (9)
  1. SPIRIVA [Suspect]
     Indication: ASTHMA
     Dosage: 18 MCG
     Route: 055
     Dates: start: 20060901
  2. PREMARIN [Concomitant]
     Indication: PREMATURE MENOPAUSE
  3. PRIMIDONE [Concomitant]
     Indication: TREMOR
  4. SINEMET [Concomitant]
     Indication: TREMOR
  5. DIOVAN [Concomitant]
     Indication: HYPERTENSION
  6. LASIX [Concomitant]
     Indication: HYPERTENSION
  7. PROZAC [Concomitant]
     Indication: DEPRESSION
  8. DEPAKOTE [Concomitant]
     Indication: DEPRESSION
  9. IRON [Concomitant]
     Indication: ANAEMIA

REACTIONS (5)
  - BLOOD PRESSURE DECREASED [None]
  - CHEST PAIN [None]
  - DIZZINESS [None]
  - EYE DISORDER [None]
  - LOSS OF CONSCIOUSNESS [None]
